FAERS Safety Report 16479729 (Version 6)
Quarter: 2019Q3

REPORT INFORMATION
  Report Type: Spontaneous
  Country: US (occurrence: US)
  Receive Date: 20190626
  Receipt Date: 20190730
  Transmission Date: 20191004
  Serious: No
  Sender: FDA-Public Use
  Company Number: PHHY2019US147073

PATIENT
  Sex: Male

DRUGS (2)
  1. SYSTANE BALANCE [Suspect]
     Active Substance: PROPYLENE GLYCOL
     Indication: PRODUCT USED FOR UNKNOWN INDICATION
     Dosage: 2 TO 3 TIMES PER DAY
     Route: 047
  2. OLOPATADINE. [Suspect]
     Active Substance: OLOPATADINE
     Indication: HYPERSENSITIVITY
     Dosage: UNK
     Route: 065

REACTIONS (4)
  - Dry skin [Not Recovered/Not Resolved]
  - Eye discharge [Not Recovered/Not Resolved]
  - Product quality issue [Unknown]
  - Lacrimation increased [Not Recovered/Not Resolved]
